FAERS Safety Report 15973588 (Version 2)
Quarter: 2019Q1

REPORT INFORMATION
  Report Type: Spontaneous
  Country: IT (occurrence: IT)
  Receive Date: 20190216
  Receipt Date: 20190315
  Transmission Date: 20190418
  Serious: Yes (Other)
  Sender: FDA-Public Use
  Company Number: PHHY2019IT034452

PATIENT
  Age: 40 Year
  Sex: Female

DRUGS (1)
  1. GILENYA [Suspect]
     Active Substance: FINGOLIMOD HYDROCHLORIDE
     Indication: MULTIPLE SCLEROSIS
     Dosage: 0.5 MG, QD
     Route: 048
     Dates: start: 20121218

REACTIONS (5)
  - Parakeratosis [Unknown]
  - Cervicitis [Unknown]
  - Metaplasia [Unknown]
  - Cervical dysplasia [Recovered/Resolved]
  - Vaginal dysplasia [Unknown]

NARRATIVE: CASE EVENT DATE: 20180601
